FAERS Safety Report 5148264-3 (Version None)
Quarter: 2006Q4

REPORT INFORMATION
  Report Type: 
  Country: None (occurrence: None)
  Receive Date: 20061106
  Receipt Date: 20061025
  Transmission Date: 20070319
  Serious: Yes (Life-Threatening, Hospitalization)
  Sender: FDA-Public Use
  Company Number: 2006AL003324

PATIENT
  Age: 40 Year
  Sex: Female

DRUGS (3)
  1. FLUOXETINE [Suspect]
     Indication: POSTPARTUM DEPRESSION
     Dosage: 20 MG, QD; PO
     Route: 048
  2. CLOMIPRAMINE HCL [Concomitant]
  3. LENTIZOL [Concomitant]

REACTIONS (11)
  - CONFUSIONAL STATE [None]
  - ELECTROCARDIOGRAM QRS COMPLEX PROLONGED [None]
  - GLASGOW COMA SCALE ABNORMAL [None]
  - GRAND MAL CONVULSION [None]
  - HEART RATE INCREASED [None]
  - METABOLIC ACIDOSIS [None]
  - MULTIPLE DRUG OVERDOSE INTENTIONAL [None]
  - MYDRIASIS [None]
  - SINUS TACHYCARDIA [None]
  - SOMNOLENCE [None]
  - THERAPEUTIC AGENT TOXICITY [None]
